FAERS Safety Report 7559713-5 (Version None)
Quarter: 2011Q2

REPORT INFORMATION
  Report Type: 
  Country: None (occurrence: None)
  Receive Date: 20110617
  Receipt Date: 20110617
  Transmission Date: 20111010
  Serious: Yes (Hospitalization)
  Sender: FDA-Public Use
  Company Number: None

PATIENT
  Age: 46 Year
  Sex: Female
  Weight: 58.9676 kg

DRUGS (1)
  1. JUNEL FE 1.5/30 [Suspect]
     Indication: ORAL CONTRACEPTION
     Dosage: DAILY PO
     Route: 048
     Dates: start: 20110210, end: 20110524

REACTIONS (1)
  - DEEP VEIN THROMBOSIS [None]
